FAERS Safety Report 9010572 (Version 1)
Quarter: 2013Q1

REPORT INFORMATION
  Report Type: Spontaneous
  Country: FR (occurrence: FR)
  Receive Date: 20130109
  Receipt Date: 20130109
  Transmission Date: 20140127
  Serious: Yes (Death, Life-Threatening)
  Sender: FDA-Public Use
  Company Number: FR-CELGENEUS-056-21880-13010396

PATIENT
  Age: 28 Year
  Sex: Male

DRUGS (1)
  1. REVLIMID [Suspect]
     Indication: HODGKIN^S DISEASE REFRACTORY
     Dosage: 15 MILLIGRAM
     Route: 048
     Dates: start: 20100308, end: 20100319

REACTIONS (1)
  - Febrile bone marrow aplasia [Fatal]
